FAERS Safety Report 22525659 (Version 1)
Quarter: 2023Q2

REPORT INFORMATION
  Report Type: Spontaneous
  Country: US (occurrence: US)
  Receive Date: 20230606
  Receipt Date: 20230606
  Transmission Date: 20230722
  Serious: Yes (Other)
  Sender: FDA-Public Use
  Company Number: US-MYLANLABS-2023M1058576

PATIENT

DRUGS (1)
  1. FINGOLIMOD [Suspect]
     Active Substance: FINGOLIMOD
     Indication: Product used for unknown indication
     Dosage: 0.5 MILLIGRAM(START DATE: AROUND 28-JAN-2023
     Route: 065
     Dates: start: 202301

REACTIONS (3)
  - Multiple sclerosis relapse [Unknown]
  - Hypoaesthesia [Unknown]
  - Drug ineffective [Unknown]

NARRATIVE: CASE EVENT DATE: 20230301
